FAERS Safety Report 24044883 (Version 1)
Quarter: 2024Q3

REPORT INFORMATION
  Report Type: Spontaneous
  Country: RU (occurrence: RU)
  Receive Date: 20240703
  Receipt Date: 20240703
  Transmission Date: 20241017
  Serious: Yes (Other)
  Sender: ROCHE
  Company Number: RU-ROCHE-10000011631

PATIENT
  Sex: Male

DRUGS (1)
  1. EMICIZUMAB [Suspect]
     Active Substance: EMICIZUMAB
     Indication: Product used for unknown indication
     Dosage: 30 MG/ML, MAINTENANCE DOSE OF 3 MG/KG TO 30 MG EVERY 2 WEEKS
     Route: 058

REACTIONS (2)
  - Tooth extraction [Unknown]
  - Testicular necrosis [Unknown]
